FAERS Safety Report 7739235-9 (Version None)
Quarter: 2011Q3

REPORT INFORMATION
  Report Type: 
  Country: None (occurrence: None)
  Receive Date: 20110909
  Receipt Date: 20110830
  Transmission Date: 20111222
  Serious: Yes (Other)
  Sender: FDA-Public Use
  Company Number: US-UCBSA-8051013

PATIENT
  Sex: Male

DRUGS (5)
  1. KEPPRA [Suspect]
     Dosage: DOSE FREQ.: DAILY
     Route: 063
  2. FERROUS SULFATE TAB [Concomitant]
     Indication: SUPPLEMENTATION THERAPY
     Route: 064
  3. FOLIC ACID [Concomitant]
     Indication: PREGNANCY
     Route: 064
  4. KEPPRA [Suspect]
     Indication: EPILEPSY
     Route: 064
  5. PRENATAL VITAMINS [Concomitant]
     Indication: PREGNANCY
     Dosage: DOSE FREQ.: DAILY
     Route: 064

REACTIONS (4)
  - TORTICOLLIS [None]
  - MATERNAL EXPOSURE DURING PREGNANCY [None]
  - GROSS MOTOR DELAY [None]
  - EXPOSURE DURING BREAST FEEDING [None]
